FAERS Safety Report 9466513 (Version 1)
Quarter: 2013Q3

REPORT INFORMATION
  Report Type: Report from Study
  Country: US (occurrence: US)
  Receive Date: 20130820
  Receipt Date: 20130820
  Transmission Date: 20140515
  Serious: Yes (Death, Hospitalization)
  Sender: FDA-Public Use
  Company Number: US-ELI_LILLY_AND_COMPANY-US201308005373

PATIENT
  Age: 61 Year
  Sex: Male

DRUGS (8)
  1. GEMCITABINE HYDROCHLORIDE [Suspect]
     Indication: PANCREATIC CARCINOMA
     Dosage: 100 MG/M2, DAYS 1M 8M 15 OER 28 DAY CYCLE
     Dates: start: 20120221
  2. OTHER PHARMA COMPANY INV DRUG [Suspect]
     Indication: PANCREATIC CARCINOMA
     Dosage: 700 MG, DAYS 1,8, 15 PER 28 DAY CYCLE
     Dates: start: 20120221
  3. LASIX [Concomitant]
     Dosage: UNK
     Dates: start: 20120301
  4. CHOLESTYRAMINE [Concomitant]
     Dosage: UNK
     Dates: start: 20120208, end: 20120322
  5. OXYCONTIN [Concomitant]
     Dosage: UNK
     Dates: start: 20120217
  6. CREON [Concomitant]
     Dosage: UNK
     Dates: start: 20111116
  7. ATENOLOL [Concomitant]
     Dosage: UNK
     Dates: start: 20110209
  8. LIPITOR [Concomitant]
     Dosage: UNK
     Dates: start: 2009

REACTIONS (4)
  - Myalgia [Recovered/Resolved]
  - Nausea [Recovered/Resolved]
  - Arthralgia [Recovered/Resolved]
  - Death [Fatal]
